FAERS Safety Report 8982721 (Version 1)
Quarter: 2012Q4

REPORT INFORMATION
  Report Type: Report from Study
  Country: CA (occurrence: CA)
  Receive Date: 20121224
  Receipt Date: 20121224
  Transmission Date: 20130627
  Serious: Yes (Other)
  Sender: FDA-Public Use
  Company Number: CA-JNJFOC-20121207024

PATIENT
  Sex: Female

DRUGS (5)
  1. REMICADE [Suspect]
     Indication: RHEUMATOID ARTHRITIS
     Route: 042
  2. METHOTREXATE [Suspect]
     Indication: PRODUCT USED FOR UNKNOWN INDICATION
     Route: 058
  3. METHOTREXATE [Suspect]
     Indication: PRODUCT USED FOR UNKNOWN INDICATION
     Route: 058
  4. PERCOCET [Concomitant]
     Route: 065
  5. ELAVIL [Concomitant]
     Route: 065

REACTIONS (2)
  - Hepatic steatosis [Unknown]
  - Hepatic enzyme increased [Unknown]
